FAERS Safety Report 9118408 (Version 1)
Quarter: 2013Q1

REPORT INFORMATION
  Report Type: Spontaneous
  Country: DE (occurrence: None)
  Receive Date: 20130128
  Receipt Date: 20130128
  Transmission Date: 20140127
  Serious: Yes (Life-Threatening, Hospitalization)
  Sender: FDA-Public Use
  Company Number: COL_13024_2013

PATIENT
  Age: 81 Year
  Sex: Male

DRUGS (5)
  1. DURAPHAT DENTAL SUSPENSION (50 MG/ML FLUORIDE DENTAL SUSPENSION) [Suspect]
     Indication: DENTAL CARIES
     Dosage: (SINGLE APPLICATION OF NECKS OF TEETH 13-23)
     Route: 048
     Dates: start: 20121203, end: 20121203
  2. DOXAZOSIN [Concomitant]
  3. ACETYLSALICYLIC ACID [Concomitant]
  4. TRAMADOL [Concomitant]
  5. LANSOPRAZOLE [Concomitant]

REACTIONS (5)
  - Anaphylactic reaction [None]
  - Lip swelling [None]
  - Nausea [None]
  - Drug hypersensitivity [None]
  - Dyspnoea [None]
